FAERS Safety Report 9797199 (Version 2)
Quarter: 2014Q1

REPORT INFORMATION
  Report Type: Spontaneous
  Country: TR (occurrence: TR)
  Receive Date: 20140106
  Receipt Date: 20140107
  Transmission Date: 20141002
  Serious: Yes (Hospitalization)
  Sender: FDA-Public Use
  Company Number: PHHY2013TR152316

PATIENT
  Age: 13 Year
  Sex: Female

DRUGS (2)
  1. THIAMAZOLE [Suspect]
     Indication: BASEDOW^S DISEASE
  2. PROPRANOLOL [Concomitant]
     Indication: BASEDOW^S DISEASE

REACTIONS (9)
  - Ventricular tachycardia [Recovered/Resolved]
  - Cardiac arrest [Unknown]
  - Pleural effusion [Unknown]
  - Renal failure [Unknown]
  - Vasculitis [Recovering/Resolving]
  - Agranulocytosis [Recovering/Resolving]
  - Oropharyngeal pain [Recovering/Resolving]
  - Pyrexia [Recovering/Resolving]
  - Rash macular [Recovering/Resolving]
